FAERS Safety Report 7462913-6 (Version None)
Quarter: 2011Q2

REPORT INFORMATION
  Report Type: 
  Country: None (occurrence: None)
  Receive Date: 20110506
  Receipt Date: 20110412
  Transmission Date: 20111010
  Serious: Yes (Hospitalization)
  Sender: FDA-Public Use
  Company Number: US-BAYER-201022565NA

PATIENT
  Age: 26 Year
  Sex: Female
  Weight: 68.027 kg

DRUGS (13)
  1. YAZ [Suspect]
     Indication: CONTRACEPTION
     Dosage: UNK
     Route: 048
     Dates: start: 20060101, end: 20090601
  2. ACIPHEX [Concomitant]
     Indication: GASTROOESOPHAGEAL REFLUX DISEASE
  3. YASMIN [Suspect]
     Indication: PREMENSTRUAL SYNDROME
  4. BETAMETHASONE VALERATE [Concomitant]
  5. ELIDEL [Concomitant]
  6. BENTYL [Concomitant]
     Indication: IRRITABLE BOWEL SYNDROME
  7. BENADRYL [Concomitant]
     Indication: HYPERSENSITIVITY
     Dosage: AS NEEDED
  8. IBUPROFEN [Concomitant]
     Dosage: AS NEEDED
  9. YASMIN [Suspect]
     Indication: CONTRACEPTION
     Dosage: UNK
     Route: 048
     Dates: start: 20030201, end: 20050201
  10. ACETAMINOPHEN [Concomitant]
     Indication: MYALGIA
     Dosage: AS NEEDED
  11. YAZ [Suspect]
     Indication: PREMENSTRUAL SYNDROME
  12. ADVIL LIQUI-GELS [Concomitant]
     Indication: MYALGIA
  13. PREVACID [Concomitant]
     Indication: IRRITABLE BOWEL SYNDROME

REACTIONS (5)
  - ABDOMINAL PAIN [None]
  - CHEST DISCOMFORT [None]
  - BILIARY DYSKINESIA [None]
  - NAUSEA [None]
  - VOMITING [None]
